FAERS Safety Report 7658738-9 (Version None)
Quarter: 2011Q3

REPORT INFORMATION
  Report Type: 
  Country: None (occurrence: None)
  Receive Date: 20110805
  Receipt Date: 20110725
  Transmission Date: 20111222
  Serious: Yes (Hospitalization)
  Sender: FDA-Public Use
  Company Number: FR-NOVOPROD-332614

PATIENT

DRUGS (4)
  1. METFORMIN HCL [Concomitant]
     Dosage: 100MG PER 3 DAYS
  2. VICTOZA [Suspect]
     Indication: TYPE 2 DIABETES MELLITUS
     Dosage: 6 MG/ML
     Route: 065
     Dates: start: 20110601, end: 20110621
  3. LANSOPRAZOLE [Concomitant]
     Dosage: 15 MG, QD
  4. CANDESARTAN CILEXETIL [Concomitant]
     Dosage: 16 MG, QD

REACTIONS (7)
  - HYPOTENSION [None]
  - HYPERGLYCAEMIA [None]
  - DEHYDRATION [None]
  - NAUSEA [None]
  - DIARRHOEA [None]
  - RENAL FAILURE ACUTE [None]
  - VOMITING [None]
